FAERS Safety Report 5492765-5 (Version None)
Quarter: 2007Q4

REPORT INFORMATION
  Report Type: 
  Country: None (occurrence: None)
  Receive Date: 20071019
  Receipt Date: 20071005
  Transmission Date: 20080405
  Serious: Yes (Hospitalization)
  Sender: FDA-Public Use
  Company Number: THYR-10195

PATIENT
  Age: 40 Year
  Sex: Female

DRUGS (4)
  1. THYROGEN [Suspect]
     Indication: DIAGNOSTIC PROCEDURE
     Dosage: 0.9 MG QD IM
     Route: 030
     Dates: start: 20040617, end: 20040618
  2. ZANIDIP [Concomitant]
  3. LEVOTHYROX [Concomitant]
  4. SEGLOR [Concomitant]

REACTIONS (28)
  - ACTIVITIES OF DAILY LIVING IMPAIRED [None]
  - ASTHMA [None]
  - BACK PAIN [None]
  - BRONCHOSPASM [None]
  - CHEST PAIN [None]
  - CHRONIC OBSTRUCTIVE PULMONARY DISEASE [None]
  - COUGH [None]
  - DIZZINESS [None]
  - DYSPNOEA [None]
  - DYSPNOEA EXERTIONAL [None]
  - FATIGUE [None]
  - GASTROOESOPHAGEAL REFLUX DISEASE [None]
  - HEADACHE [None]
  - HIATUS HERNIA [None]
  - HYPERVENTILATION [None]
  - HYPOCAPNIA [None]
  - HYPOXIA [None]
  - ILL-DEFINED DISORDER [None]
  - LOSS OF EMPLOYMENT [None]
  - MALAISE [None]
  - PAIN [None]
  - PEAK EXPIRATORY FLOW RATE DECREASED [None]
  - PYREXIA [None]
  - RALES [None]
  - RASH [None]
  - RESPIRATORY DISORDER [None]
  - SINUSITIS [None]
  - TACHYCARDIA [None]
